FAERS Safety Report 9247135 (Version 1)
Quarter: 2013Q2

REPORT INFORMATION
  Report Type: Spontaneous
  Country: JP (occurrence: JP)
  Receive Date: 20130423
  Receipt Date: 20130423
  Transmission Date: 20140414
  Serious: Yes (Other)
  Sender: FDA-Public Use
  Company Number: JP-AMGEN-JPNSP2012076677

PATIENT
  Age: 74 Year
  Sex: Male
  Weight: 74 kg

DRUGS (16)
  1. VECTIBIX [Suspect]
     Indication: COLON CANCER
     Dosage: 450 MG, Q2WK
     Route: 041
     Dates: start: 20120709, end: 20120903
  2. VECTIBIX [Suspect]
     Dosage: 360 MG, Q2WK
     Route: 041
     Dates: start: 20121029
  3. TOPOTECIN [Concomitant]
     Indication: COLON CANCER
     Dosage: 320 MG, Q2WK
     Route: 041
     Dates: start: 20120709
  4. 5-FU /00098801/ [Concomitant]
     Indication: COLON CANCER
     Dosage: UNK UNK, Q2WK
     Route: 042
     Dates: start: 20120508
  5. 5-FU /00098801/ [Concomitant]
     Dosage: 700 MG, Q2WK
     Route: 040
     Dates: start: 20120709
  6. 5-FU /00098801/ [Concomitant]
     Dosage: 4350 MG, Q2WK
     Route: 041
     Dates: start: 20120709
  7. LEVOFOLINATE [Concomitant]
     Indication: COLON CANCER
     Dosage: UNK UNK, Q2WK
     Route: 041
     Dates: start: 20120508
  8. LEVOFOLINATE [Concomitant]
     Dosage: 350 MG, Q2WK
     Route: 041
     Dates: start: 20120709
  9. HIRUDOID                           /00723701/ [Concomitant]
     Dosage: UNK
     Route: 062
     Dates: start: 20120702
  10. RINDERON-V [Concomitant]
     Dosage: UNK
     Route: 062
     Dates: start: 20120709
  11. LOCOID [Concomitant]
     Dosage: UNK
     Route: 062
     Dates: start: 20120709
  12. MYSER                              /00115501/ [Concomitant]
     Dosage: UNK
     Route: 062
     Dates: start: 20120709
  13. CLINDAMYCIN [Concomitant]
     Dosage: UNK
     Route: 062
     Dates: start: 20120709
  14. MINOMYCIN [Concomitant]
     Dosage: 100 MG, QD
     Route: 048
     Dates: start: 20120709, end: 20120716
  15. MINOMYCIN [Concomitant]
     Dosage: UNK UNK, QD
     Route: 048
     Dates: start: 20120803
  16. CLARITIN                           /00413701/ [Concomitant]
     Dosage: 10 MG, QD
     Route: 048
     Dates: start: 20120709

REACTIONS (2)
  - Genital ulceration [Recovered/Resolved]
  - Skin ulcer [Recovered/Resolved]
